FAERS Safety Report 13049218 (Version 1)
Quarter: 2016Q4

REPORT INFORMATION
  Report Type: Spontaneous
  Country: US (occurrence: US)
  Receive Date: 20161221
  Receipt Date: 20161221
  Transmission Date: 20170207
  Serious: No
  Sender: FDA-Public Use
  Company Number: US-DRREDDYS-USA/USA/16/0076522

PATIENT
  Age: 7 Year
  Sex: Male

DRUGS (4)
  1. TENEX [Suspect]
     Active Substance: GUANFACINE HYDROCHLORIDE
     Indication: ATTENTION DEFICIT/HYPERACTIVITY DISORDER
     Route: 065
     Dates: start: 201507
  2. TENEX [Suspect]
     Active Substance: GUANFACINE HYDROCHLORIDE
     Route: 065
  3. TENEX [Suspect]
     Active Substance: GUANFACINE HYDROCHLORIDE
     Route: 065
  4. TENEX [Suspect]
     Active Substance: GUANFACINE HYDROCHLORIDE
     Route: 048

REACTIONS (1)
  - Syncope [Recovered/Resolved]

NARRATIVE: CASE EVENT DATE: 20160101
